FAERS Safety Report 8346814-7 (Version None)
Quarter: 2012Q2

REPORT INFORMATION
  Report Type: 
  Country: None (occurrence: None)
  Receive Date: 20120509
  Receipt Date: 20120430
  Transmission Date: 20120825
  Serious: Yes (Hospitalization)
  Sender: FDA-Public Use
  Company Number: ES-SANOFI-AVENTIS-2012SA030494

PATIENT
  Age: 54 Year
  Sex: Male
  Weight: 85.7 kg

DRUGS (10)
  1. BLINDED THERAPY [Suspect]
     Route: 065
     Dates: start: 20110609
  2. INSULIN GLARGINE [Suspect]
     Dosage: DOSE:35 UNIT(S)
     Route: 058
     Dates: start: 20110609
  3. METFORMIN HCL [Concomitant]
     Dates: start: 20020101
  4. OMEPRAZOLE [Concomitant]
     Indication: PROPHYLAXIS
     Dates: start: 19950101
  5. INSULIN LISPRO [Concomitant]
     Dates: start: 20110616
  6. ENALAPRIL MALEATE [Concomitant]
     Indication: HYPERTENSION
     Dates: start: 20020101
  7. HYDROCHLOROTHIAZIDE [Concomitant]
     Indication: HYPERTENSION
     Dates: start: 20020101
  8. ASPIRIN [Concomitant]
     Indication: PROPHYLAXIS
     Dates: start: 20020101
  9. SIMVASTATIN [Concomitant]
     Dates: start: 20020101
  10. INSULIN GLARGINE [Suspect]
     Dosage: DOSE:35 UNIT(S)
     Route: 058
     Dates: start: 20111120

REACTIONS (4)
  - FATIGUE [None]
  - DYSPHAGIA [None]
  - AMYOTROPHIC LATERAL SCLEROSIS [None]
  - DYSPNOEA EXERTIONAL [None]
